FAERS Safety Report 9082137 (Version 1)
Quarter: 2013Q1

REPORT INFORMATION
  Report Type: Report from Study
  Country: US (occurrence: US)
  Receive Date: 20130130
  Receipt Date: 20130130
  Transmission Date: 20140127
  Serious: No
  Sender: FDA-Public Use
  Company Number: US-ABBOTT-12P-163-0967985-00

PATIENT
  Age: 33 Year
  Sex: Male

DRUGS (6)
  1. HUMIRA 40 MG/0.8 ML PEN [Suspect]
     Indication: ANKYLOSING SPONDYLITIS
     Dates: start: 20120527, end: 201207
  2. HUMIRA 40 MG/0.8 ML PEN [Suspect]
     Dates: start: 20120811
  3. DICLOFENAC [Concomitant]
     Indication: INFLAMMATION
     Dosage: DAILY
  4. PREDNISONE [Concomitant]
     Indication: INFLAMMATION
     Dosage: 5MG DAILY
  5. TRIPTYLINE [Concomitant]
     Indication: NEUROPATHY PERIPHERAL
  6. PERCOCET [Concomitant]
     Indication: PAIN

REACTIONS (9)
  - Malaise [Not Recovered/Not Resolved]
  - Cough [Not Recovered/Not Resolved]
  - Fatigue [Not Recovered/Not Resolved]
  - Dizziness [Not Recovered/Not Resolved]
  - Insomnia [Not Recovered/Not Resolved]
  - Hyperhidrosis [Not Recovered/Not Resolved]
  - Dyspnoea [Not Recovered/Not Resolved]
  - Bronchitis [Not Recovered/Not Resolved]
  - Rash [Not Recovered/Not Resolved]
